FAERS Safety Report 6111125-7 (Version None)
Quarter: 2009Q1

REPORT INFORMATION
  Report Type: 
  Country: None (occurrence: None)
  Receive Date: 20090311
  Receipt Date: 20090302
  Transmission Date: 20090719
  Serious: Yes (Other)
  Sender: FDA-Public Use
  Company Number: US-TEVA-186900USA

PATIENT
  Age: 48 Year
  Sex: Female

DRUGS (4)
  1. DOXORUBICIN HYDROCHLORIDE 10 MG/ML, 20 MG/ML, 50 MG/ML + 150 MG/ML POW [Suspect]
     Route: 034
     Dates: start: 20060301
  2. MITOMYCIN [Suspect]
     Route: 034
     Dates: start: 20060301
  3. FLUOROURACIL [Concomitant]
     Route: 042
     Dates: start: 20060301
  4. FOLINIC ACID [Concomitant]
     Route: 042
     Dates: start: 20060301

REACTIONS (3)
  - INTERSTITIAL LUNG DISEASE [None]
  - OBSTRUCTION GASTRIC [None]
  - SEPSIS [None]
